FAERS Safety Report 17655287 (Version 1)
Quarter: 2020Q2

REPORT INFORMATION
  Report Type: Spontaneous
  Country: US (occurrence: US)
  Receive Date: 20200409
  Receipt Date: 20200409
  Transmission Date: 20200713
  Serious: No
  Sender: FDA-Public Use
  Company Number: None

PATIENT
  Age: 15 Year
  Sex: Male
  Weight: 64 kg

DRUGS (3)
  1. FENTANYL. [Concomitant]
     Active Substance: FENTANYL
     Dates: start: 20200407
  2. MIDAZOLAM. [Concomitant]
     Active Substance: MIDAZOLAM
     Dates: start: 20200407
  3. DEXMEDETOMIDINE HCL [Suspect]
     Active Substance: DEXMEDETOMIDINE HYDROCHLORIDE
     Indication: SEDATION
     Route: 041
     Dates: start: 20200407, end: 20200407

REACTIONS (4)
  - Electrocardiogram P wave abnormal [None]
  - Atrioventricular dissociation [None]
  - Atrioventricular block [None]
  - Blood pressure decreased [None]

NARRATIVE: CASE EVENT DATE: 20200407
